FAERS Safety Report 26009347 (Version 1)
Quarter: 2025Q4

REPORT INFORMATION
  Report Type: Spontaneous
  Country: CA (occurrence: CA)
  Receive Date: 20251107
  Receipt Date: 20251107
  Transmission Date: 20260118
  Serious: Yes (Other)
  Sender: LEO PHARM
  Company Number: None

PATIENT
  Age: 48 Year
  Sex: Male

DRUGS (21)
  1. MYCOPHENOLATE MOFETIL [Suspect]
     Active Substance: MYCOPHENOLATE MOFETIL
     Indication: Congenital cystic kidney disease
     Dosage: FREQUENCY: 1 EVERY 0.5 DAYS
  2. MYCOPHENOLATE MOFETIL [Suspect]
     Active Substance: MYCOPHENOLATE MOFETIL
     Indication: Congenital cystic kidney disease
     Dosage: FREQUENCY: 1 EVERY 0.5 DAYS
  3. MYCOPHENOLATE MOFETIL [Suspect]
     Active Substance: MYCOPHENOLATE MOFETIL
     Indication: End stage renal disease
     Dosage: FREQUENCY: 1 EVERY 0.5 DAYS
  4. MYCOPHENOLATE MOFETIL [Suspect]
     Active Substance: MYCOPHENOLATE MOFETIL
     Indication: End stage renal disease
     Dosage: FREQUENCY: 1 EVERY 0.5 DAYS
  5. MYCOPHENOLATE MOFETIL [Suspect]
     Active Substance: MYCOPHENOLATE MOFETIL
     Indication: Immunosuppression
     Dosage: FREQUENCY: 1 EVERY 0.5 DAYS
  6. MYCOPHENOLATE MOFETIL [Suspect]
     Active Substance: MYCOPHENOLATE MOFETIL
     Indication: Immunosuppression
     Dosage: FREQUENCY: 1 EVERY 0.5 DAYS
  7. SIROLIMUS [Concomitant]
     Active Substance: SIROLIMUS
     Indication: Immunosuppression
  8. DEXAMETHASONE [Concomitant]
     Active Substance: DEXAMETHASONE
     Indication: Immunosuppression
  9. XELODA [Suspect]
     Active Substance: CAPECITABINE
     Indication: Central nervous system lesion
  10. PREDNISONE [Suspect]
     Active Substance: PREDNISONE
     Indication: Congenital cystic kidney disease
  11. PREDNISONE [Suspect]
     Active Substance: PREDNISONE
     Indication: Congenital cystic kidney disease
  12. PREDNISONE [Suspect]
     Active Substance: PREDNISONE
     Indication: Immunosuppression
  13. PREDNISONE [Suspect]
     Active Substance: PREDNISONE
     Indication: Immunosuppression
  14. PREDNISONE [Suspect]
     Active Substance: PREDNISONE
     Indication: End stage renal disease
  15. PREDNISONE [Suspect]
     Active Substance: PREDNISONE
     Indication: End stage renal disease
  16. CARBOPLATIN [Concomitant]
     Active Substance: CARBOPLATIN
     Indication: Product used for unknown indication
     Dosage: DOSAGE FORM: SOLUTION INTRAVENOUS
  17. TACROLIMUS [Suspect]
     Active Substance: TACROLIMUS
     Indication: End stage renal disease
  18. TACROLIMUS [Suspect]
     Active Substance: TACROLIMUS
     Indication: Congenital cystic kidney disease
  19. TACROLIMUS [Suspect]
     Active Substance: TACROLIMUS
     Indication: Immunosuppression
  20. THYMOCYTE IMMUNE GLOBULIN NOS [Suspect]
     Active Substance: THYMOCYTE IMMUNE GLOBULIN NOS
     Indication: End stage renal disease
  21. THYMOCYTE IMMUNE GLOBULIN NOS [Suspect]
     Active Substance: THYMOCYTE IMMUNE GLOBULIN NOS
     Indication: Congenital cystic kidney disease

REACTIONS (5)
  - Polyomavirus viraemia [Recovered/Resolved]
  - Lymphadenopathy [Recovered/Resolved]
  - Squamous cell carcinoma of skin [Recovered/Resolved]
  - Oropharyngeal squamous cell carcinoma [Recovered/Resolved]
  - Cytomegalovirus viraemia [Recovered/Resolved]
